FAERS Safety Report 12716415 (Version 1)
Quarter: 2016Q3

REPORT INFORMATION
  Report Type: Spontaneous
  Country: US (occurrence: US)
  Receive Date: 20160906
  Receipt Date: 20160906
  Transmission Date: 20161109
  Serious: Yes (Hospitalization)
  Sender: FDA-Public Use
  Company Number: US-BAYER-2016-170867

PATIENT
  Age: 61 Year
  Sex: Female
  Weight: 56.68 kg

DRUGS (3)
  1. BAYER GENUINE ASPIRIN [Suspect]
     Active Substance: ASPIRIN
     Indication: PNEUMONIA
     Route: 048
  2. ALEVE [Suspect]
     Active Substance: NAPROXEN SODIUM
     Indication: TENDONITIS
     Dosage: 1 DF, QD
     Route: 048
     Dates: start: 201605
  3. ALEVE [Suspect]
     Active Substance: NAPROXEN SODIUM
     Indication: TENDONITIS
     Dosage: ONE EVERY DAY AFTER

REACTIONS (3)
  - Product use issue [Recovered/Resolved]
  - Hospitalisation [Recovered/Resolved]
  - Product use issue [None]

NARRATIVE: CASE EVENT DATE: 201605
